FAERS Safety Report 11360456 (Version 1)
Quarter: 2015Q3

REPORT INFORMATION
  Report Type: Spontaneous
  Country: GB (occurrence: GB)
  Receive Date: 20150810
  Receipt Date: 20150810
  Transmission Date: 20151125
  Serious: Yes (Hospitalization)
  Sender: FDA-Public Use
  Company Number: GB-TEVA-583743ACC

PATIENT
  Age: 55 Year
  Sex: Male

DRUGS (1)
  1. WARFARIN [Suspect]
     Active Substance: WARFARIN
     Indication: HEART VALVE REPLACEMENT
     Dosage: 5 MILLIGRAM DAILY; PRIOR TO ADMISSION; DAILY DOSE 5 MILLIGRAM
     Route: 048
     Dates: start: 20150711, end: 20150713

REACTIONS (3)
  - Haematuria [Recovered/Resolved]
  - Tenderness [Unknown]
  - International normalised ratio increased [Recovered/Resolved]

NARRATIVE: CASE EVENT DATE: 20150711
